FAERS Safety Report 15617860 (Version 4)
Quarter: 2019Q1

REPORT INFORMATION
  Report Type: Spontaneous
  Country: US (occurrence: US)
  Receive Date: 20181114
  Receipt Date: 20190304
  Transmission Date: 20190417
  Serious: Yes (Other)
  Sender: FDA-Public Use
  Company Number: US-PFIZER INC-2018461502

PATIENT
  Age: 67 Year
  Sex: Female
  Weight: 69 kg

DRUGS (1)
  1. IBRANCE [Suspect]
     Active Substance: PALBOCICLIB
     Indication: BREAST CANCER METASTATIC
     Dosage: 125 MG, CYCLIC (D1-21 EVERY 28DAYS)
     Route: 048
     Dates: start: 20181024

REACTIONS (12)
  - Sinusitis [Recovering/Resolving]
  - Vomiting [Unknown]
  - Alopecia [Unknown]
  - Back pain [Unknown]
  - Breast abscess [Unknown]
  - Nausea [Unknown]
  - Fatigue [Unknown]
  - White blood cell count decreased [Unknown]
  - Epistaxis [Unknown]
  - Peripheral swelling [Unknown]
  - Neck pain [Unknown]
  - Cellulitis [Not Recovered/Not Resolved]

NARRATIVE: CASE EVENT DATE: 2018
